FAERS Safety Report 19564333 (Version 2)
Quarter: 2024Q2

REPORT INFORMATION
  Report Type: Report from Study
  Country: ES (occurrence: ES)
  Receive Date: 20210714
  Receipt Date: 20240612
  Transmission Date: 20240715
  Serious: Yes (Death, Other)
  Sender: FDA-Public Use
  Company Number: US-JNJFOC-20200117576

PATIENT

DRUGS (2)
  1. IMBRUVICA [Suspect]
     Active Substance: IBRUTINIB
     Indication: Chronic lymphocytic leukaemia
     Route: 065
  2. OFATUMUMAB [Suspect]
     Active Substance: OFATUMUMAB
     Indication: Chronic lymphocytic leukaemia
     Route: 065

REACTIONS (10)
  - Pleural effusion [Fatal]
  - Oedema peripheral [Fatal]
  - Squamous cell carcinoma [Unknown]
  - Renal failure [Unknown]
  - Febrile neutropenia [Unknown]
  - Neutropenia [Unknown]
  - Thrombocytopenia [Unknown]
  - Anaemia [Unknown]
  - Infection [Unknown]
  - Dyspnoea [Unknown]
